FAERS Safety Report 23153084 (Version 2)
Quarter: 2023Q4

REPORT INFORMATION
  Report Type: Spontaneous
  Country: US (occurrence: US)
  Receive Date: 20231107
  Receipt Date: 20231213
  Transmission Date: 20240110
  Serious: No
  Sender: FDA-Public Use
  Company Number: US-LEO Pharma-364662

PATIENT
  Age: 30 Year
  Sex: Male

DRUGS (1)
  1. ADBRY [Suspect]
     Active Substance: TRALOKINUMAB-LDRM
     Indication: Dermatitis atopic
     Dosage: TREATMENT IS ONGOING FROM 01 FEB 2023
     Route: 058
     Dates: start: 20230201

REACTIONS (2)
  - Therapeutic product effect incomplete [Unknown]
  - Dermatitis atopic [Unknown]
